FAERS Safety Report 25989535 (Version 1)
Quarter: 2025Q4

REPORT INFORMATION
  Report Type: Report from Study
  Country: US (occurrence: US)
  Receive Date: 20251103
  Receipt Date: 20251103
  Transmission Date: 20260117
  Serious: No
  Sender: ACADIA PHARMACEUTICALS
  Company Number: US-ACADIA PHARMACEUTICALS INC.-ACA-2025-PIM-011815

PATIENT
  Age: 76 Year
  Sex: Female

DRUGS (6)
  1. NUPLAZID [Suspect]
     Active Substance: PIMAVANSERIN TARTRATE
     Indication: Parkinson^s disease psychosis
     Dosage: 10 MILLIGRAM, QD
     Route: 048
     Dates: start: 20250825, end: 20251029
  2. METOPROLOL [Concomitant]
     Active Substance: METOPROLOL
  3. ATORVASTATIN [Concomitant]
     Active Substance: ATORVASTATIN
  4. CARBIDOPA\LEVODOPA [Concomitant]
     Active Substance: CARBIDOPA\LEVODOPA
  5. QUETIAPINE [Concomitant]
     Active Substance: QUETIAPINE
  6. LOSARTAN [Concomitant]
     Active Substance: LOSARTAN

REACTIONS (3)
  - Abnormal behaviour [Unknown]
  - Gait disturbance [Unknown]
  - Underdose [Unknown]

NARRATIVE: CASE EVENT DATE: 20250825
